FAERS Safety Report 19724859 (Version 1)
Quarter: 2021Q3

REPORT INFORMATION
  Report Type: Spontaneous
  Country: DE (occurrence: DE)
  Receive Date: 20210820
  Receipt Date: 20210820
  Transmission Date: 20211014
  Serious: Yes (Hospitalization)
  Sender: FDA-Public Use
  Company Number: DE-AUROBINDO-AUR-APL-2013-03597

PATIENT
  Age: 27 Year
  Sex: Male

DRUGS (11)
  1. LORAZEPAM. [Concomitant]
     Active Substance: LORAZEPAM
     Indication: PRODUCT USED FOR UNKNOWN INDICATION
     Dosage: 0.5 MILLIGRAM
     Route: 048
     Dates: start: 20121204, end: 20121207
  2. LORAZEPAM. [Concomitant]
     Active Substance: LORAZEPAM
     Dosage: 0.5 MILLIGRAM
     Route: 048
     Dates: start: 20121216
  3. QUETIAPINE AUROBINDO FILM?COATED TABLETS 300MG [Suspect]
     Active Substance: QUETIAPINE
     Indication: PRODUCT USED FOR UNKNOWN INDICATION
     Dosage: 300 MILLIGRAM
     Route: 048
     Dates: start: 20121205, end: 20121207
  4. QUETIAPINE AUROBINDO FILM?COATED TABLETS 300MG [Suspect]
     Active Substance: QUETIAPINE
     Dosage: UNK UNK,UNK,,400?600 MG
     Route: 048
     Dates: start: 20121208
  5. QUILONORM [Suspect]
     Active Substance: LITHIUM
     Dosage: 675 MILLIGRAM
     Route: 048
     Dates: start: 20121207
  6. LORAZEPAM. [Concomitant]
     Active Substance: LORAZEPAM
     Dosage: 1 MG,UNK,
     Route: 048
     Dates: start: 20121211, end: 20121215
  7. QUILONORM [Suspect]
     Active Substance: LITHIUM
     Dosage: 450 MILLIGRAM
     Route: 048
     Dates: start: 20121208, end: 20121213
  8. LORAZEPAM. [Concomitant]
     Active Substance: LORAZEPAM
     Dosage: 1.5 MG,UNK,
     Route: 048
     Dates: start: 20121208, end: 20121210
  9. QUILONORM [Suspect]
     Active Substance: LITHIUM
     Indication: PRODUCT USED FOR UNKNOWN INDICATION
     Dosage: 450 MILLIGRAM
     Route: 048
     Dates: start: 20121114, end: 20121128
  10. QUILONORM [Suspect]
     Active Substance: LITHIUM
     Dosage: 900 MILLIGRAM
     Route: 048
     Dates: start: 20121129, end: 20121206
  11. RAMIPRIL. [Concomitant]
     Active Substance: RAMIPRIL
     Indication: PRODUCT USED FOR UNKNOWN INDICATION
     Dosage: 2.5 MILLIGRAM
     Route: 048
     Dates: start: 2012

REACTIONS (1)
  - Myoclonus [Recovered/Resolved]

NARRATIVE: CASE EVENT DATE: 20121207
